FAERS Safety Report 22076588 (Version 2)
Quarter: 2023Q1

REPORT INFORMATION
  Report Type: Spontaneous
  Country: DE (occurrence: DE)
  Receive Date: 20230309
  Receipt Date: 20230327
  Transmission Date: 20230417
  Serious: Yes (Hospitalization)
  Sender: FDA-Public Use
  Company Number: DE-BIOGEN-2023BI01191973

PATIENT
  Age: 17 Year
  Sex: Female
  Weight: 41.5 kg

DRUGS (9)
  1. SPINRAZA [Suspect]
     Active Substance: NUSINERSEN
     Indication: Spinal muscular atrophy
     Route: 050
     Dates: start: 20171012
  2. SPINRAZA [Suspect]
     Active Substance: NUSINERSEN
     Route: 050
     Dates: start: 20180419
  3. OMEPRAZOLE [Concomitant]
     Active Substance: OMEPRAZOLE
     Indication: Gastrooesophageal reflux disease
     Dosage: 20 MG AND 40 MG ALTERNATING DAILY
     Route: 050
     Dates: start: 20180323
  4. DIMENHYDRINATE [Concomitant]
     Active Substance: DIMENHYDRINATE
     Indication: Nausea
     Dosage: AS NEEDED
     Route: 050
  5. IBUPROFEN [Concomitant]
     Active Substance: IBUPROFEN
     Indication: Headache
     Dosage: AS NEEDED
     Route: 050
  6. Kalinor [Concomitant]
     Indication: Hypokalaemia
     Route: 050
     Dates: start: 20221211, end: 20221212
  7. NALBUPHINE [Concomitant]
     Active Substance: NALBUPHINE
     Indication: Headache
     Dosage: AS NEEDED
     Route: 050
  8. METAMIZOLE [Concomitant]
     Active Substance: METAMIZOLE
     Indication: Headache
     Dosage: AS NEEDED
     Route: 050
  9. ACETAMINOPHEN [Concomitant]
     Active Substance: ACETAMINOPHEN
     Indication: Headache
     Dosage: AS NEEDED
     Route: 050

REACTIONS (1)
  - Parainfluenzae viral bronchitis [Recovered/Resolved]

NARRATIVE: CASE EVENT DATE: 20221206
